FAERS Safety Report 14033681 (Version 1)
Quarter: 2017Q4

REPORT INFORMATION
  Report Type: Spontaneous
  Country: GB (occurrence: GB)
  Receive Date: 20171003
  Receipt Date: 20171003
  Transmission Date: 20180321
  Serious: Yes (Disabling, Other)
  Sender: FDA-Public Use
  Company Number: GB-TEVA-809290ACC

PATIENT
  Age: 70 Year
  Sex: Female
  Weight: 71.1 kg

DRUGS (11)
  1. BISOPROLOL FUMARATE. [Suspect]
     Active Substance: BISOPROLOL FUMARATE
     Indication: ATRIAL FIBRILLATION
     Dosage: 1.25 MILLIGRAM DAILY;
     Dates: start: 20170704, end: 20170712
  2. SOTALOL. [Concomitant]
     Active Substance: SOTALOL
     Dosage: REDUCED THEN DISCONTINUED ON TAKING BISOPROLOL.
     Dates: end: 201707
  3. BISOPROLOL FUMARATE. [Suspect]
     Active Substance: BISOPROLOL FUMARATE
     Indication: ATRIAL FIBRILLATION
     Dosage: 3.75 MILLIGRAM DAILY;
     Dates: start: 20170713, end: 20170714
  4. BISOPROLOL FUMARATE. [Suspect]
     Active Substance: BISOPROLOL FUMARATE
     Indication: ATRIAL FIBRILLATION
     Dosage: 5 MILLIGRAM DAILY; SLOW DISCONTINUATION IN PROGRESS.
     Dates: start: 20170715, end: 20170904
  5. BISOPROLOL FUMARATE. [Suspect]
     Active Substance: BISOPROLOL FUMARATE
     Indication: ATRIAL FIBRILLATION
     Dosage: 1.25 MILLIGRAM DAILY; AT NIGHT
     Dates: start: 20170904
  6. LIQUIFILM TEARS [Concomitant]
     Active Substance: POLYVINYL ALCOHOL
     Indication: DRY EYE
     Route: 050
  7. ACCRETE D3 [Concomitant]
     Indication: OSTEOPOROSIS
  8. RANITIDINE. [Concomitant]
     Active Substance: RANITIDINE
     Indication: GASTROOESOPHAGEAL REFLUX DISEASE
  9. BUMETANIDE. [Concomitant]
     Active Substance: BUMETANIDE
     Indication: FLUID RETENTION
     Dosage: 2 TABLETS ALTERNATE DAYS OR 1 DAILY.
  10. PIZOTIFEN [Concomitant]
     Active Substance: PIZOTYLINE
     Indication: MIGRAINE
     Dosage: 2 TABLETS NIGHTLY
  11. RISEDRONATE SODIUM. [Concomitant]
     Active Substance: RISEDRONATE SODIUM
     Indication: OSTEOPOROSIS

REACTIONS (11)
  - Somnolence [Recovering/Resolving]
  - Agitation [Recovering/Resolving]
  - Tremor [Recovering/Resolving]
  - Depression [Recovering/Resolving]
  - Listless [Recovering/Resolving]
  - Feeling abnormal [Recovering/Resolving]
  - Dissociation [Recovering/Resolving]
  - Mental disorder [Recovering/Resolving]
  - Nightmare [Recovering/Resolving]
  - Fatigue [Recovering/Resolving]
  - Anxiety [Recovering/Resolving]

NARRATIVE: CASE EVENT DATE: 20170707
